FAERS Safety Report 6107811-5 (Version None)
Quarter: 2009Q1

REPORT INFORMATION
  Report Type: 
  Country: None (occurrence: None)
  Receive Date: 20090309
  Receipt Date: 20090302
  Transmission Date: 20090719
  Serious: Yes (Life-Threatening, Hospitalization, Other)
  Sender: FDA-Public Use
  Company Number: B0563528A

PATIENT
  Age: 48 Year
  Sex: Female

DRUGS (3)
  1. AUGMENTIN '125' [Suspect]
     Indication: DRUG USE FOR UNKNOWN INDICATION
     Dosage: 1.2G PER DAY
     Route: 042
     Dates: start: 20090212, end: 20090217
  2. ORNIDAZOLE [Concomitant]
  3. AMIKACIN [Concomitant]

REACTIONS (3)
  - HYPOXIA [None]
  - RESPIRATORY DISTRESS [None]
  - STRIDOR [None]
